FAERS Safety Report 6201424-2 (Version None)
Quarter: 2009Q2

REPORT INFORMATION
  Report Type: 
  Country: None (occurrence: None)
  Receive Date: 20090526
  Receipt Date: 20090520
  Transmission Date: 20091009
  Serious: Yes (Death)
  Sender: FDA-Public Use
  Company Number: FR-ROCHE-616281

PATIENT
  Sex: Male
  Weight: 95 kg

DRUGS (9)
  1. CAPECITABINE [Suspect]
     Indication: GASTRIC CANCER
     Route: 048
     Dates: start: 20090120, end: 20090209
  2. OXALIPLATIN [Suspect]
     Indication: GASTRIC CANCER
     Dosage: ROUTE: INTRAVENOUS (NOT OTHERWISE SPECIFIED), PATIENT RECEIVED CYCLE 2 ON 09 FEB 2009 AT 100 MG/M2
     Route: 042
     Dates: start: 20090120, end: 20090209
  3. DOCETAXEL [Suspect]
     Indication: GASTRIC CANCER
     Dosage: ROUTE: INTRAVENOUS (NOT OTHERWISE SPECIFIED), PATIENT RECEIVED CYCLE 2 ON 09 FEB 2009 AT 100 MG/M2
     Route: 042
     Dates: start: 20090120, end: 20090209
  4. KARDEGIC [Concomitant]
     Route: 048
     Dates: start: 20010101
  5. CRESTOR [Concomitant]
     Route: 048
     Dates: start: 20010101
  6. OMACOR [Concomitant]
     Route: 048
     Dates: start: 20010101
  7. APROVEL [Concomitant]
     Indication: HYPERTENSION
     Route: 048
  8. ZYLORIC [Concomitant]
     Route: 048
  9. LODOZ [Concomitant]
     Route: 048
     Dates: start: 20010101

REACTIONS (1)
  - MYOCARDIAL INFARCTION [None]
